FAERS Safety Report 21142631 (Version 1)
Quarter: 2022Q3

REPORT INFORMATION
  Report Type: Spontaneous
  Country: CN (occurrence: CN)
  Receive Date: 20220728
  Receipt Date: 20220728
  Transmission Date: 20221026
  Serious: Yes (Other)
  Sender: FDA-Public Use
  Company Number: CN-009507513-2207CHN007256

PATIENT
  Age: 86 Year
  Sex: Male
  Weight: 62 kg

DRUGS (10)
  1. CILASTATIN SODIUM\IMIPENEM [Suspect]
     Active Substance: CILASTATIN SODIUM\IMIPENEM
     Indication: Pneumonia
     Dosage: 1G Q12H IVGTT
     Route: 041
     Dates: start: 20220527, end: 20220610
  2. CILASTATIN SODIUM\IMIPENEM [Suspect]
     Active Substance: CILASTATIN SODIUM\IMIPENEM
     Dosage: 1G Q12H IVGTT
     Route: 041
     Dates: start: 20220623, end: 20220629
  3. PIPERACILLIN AND TAZOBACTAM [Suspect]
     Active Substance: PIPERACILLIN SODIUM\TAZOBACTAM SODIUM
     Indication: Pneumonia
     Dosage: 4.5G Q12H IVGTT
     Route: 041
     Dates: start: 20220610, end: 20220623
  4. PIPERACILLIN AND TAZOBACTAM [Suspect]
     Active Substance: PIPERACILLIN SODIUM\TAZOBACTAM SODIUM
     Dosage: 4.5G Q12H IVGTT
     Route: 041
     Dates: start: 20220629, end: 20220713
  5. EPERISONE HYDROCHLORIDE [Concomitant]
     Active Substance: EPERISONE HYDROCHLORIDE
     Indication: Muscle tightness
     Dosage: 50 MG TID NASOGASTRIC FEEDING
     Route: 045
     Dates: start: 20220525, end: 20220701
  6. BENSERAZIDE\LEVODOPA [Concomitant]
     Active Substance: BENSERAZIDE\LEVODOPA
     Indication: Parkinson^s disease
     Dosage: 0.25 TABLET TID NASAL FEEDING
     Route: 045
     Dates: start: 20220525, end: 20220715
  7. DOXOFYLLINE [Concomitant]
     Active Substance: DOXOFYLLINE
     Indication: Pneumonia
     Dosage: 0.2G QD IVGTT
     Route: 041
     Dates: start: 20220525, end: 20220715
  8. METHYLPREDNISOLONE SODIUM SUCCINATE [Concomitant]
     Active Substance: METHYLPREDNISOLONE SODIUM SUCCINATE
     Indication: Pneumonia
     Dosage: 40 MG IVGTT
     Route: 041
     Dates: start: 20220526
  9. SODIUM CHLORIDE [Concomitant]
     Active Substance: SODIUM CHLORIDE
     Indication: Pneumonia
     Dosage: 100 ML  QD
     Route: 041
     Dates: start: 20220525, end: 20220715
  10. SODIUM CHLORIDE [Concomitant]
     Active Substance: SODIUM CHLORIDE
     Dosage: 100 ML Q12H IVGTT
     Route: 041
     Dates: start: 20220527, end: 20220629

REACTIONS (4)
  - Pseudomembranous colitis [Recovered/Resolved]
  - Diarrhoea [Recovered/Resolved]
  - Mucous stools [Recovered/Resolved]
  - Faeces discoloured [Recovered/Resolved]

NARRATIVE: CASE EVENT DATE: 20220626
